FAERS Safety Report 25245311 (Version 3)
Quarter: 2025Q2

REPORT INFORMATION
  Report Type: Spontaneous
  Country: GR (occurrence: GR)
  Receive Date: 20250428
  Receipt Date: 20250609
  Transmission Date: 20250716
  Serious: No
  Sender: PFIZER
  Company Number: GR-PFIZER INC-PV202500047387

PATIENT
  Age: 13 Year
  Sex: Male
  Weight: 71 kg

DRUGS (5)
  1. GENOTROPIN [Suspect]
     Active Substance: SOMATROPIN
     Indication: Hypopituitarism
     Dosage: SUNDAY DAY OFF
     Route: 058
     Dates: start: 202401
  2. MEDITHYROX [Concomitant]
     Indication: Hypothyroidism
  3. PITAVASTATIN [Concomitant]
     Active Substance: PITAVASTATIN
     Indication: Hypercholesterolaemia
  4. ARIMIDEX [Concomitant]
     Active Substance: ANASTROZOLE
  5. OXANDROLONE [Concomitant]
     Active Substance: OXANDROLONE

REACTIONS (2)
  - Device issue [Unknown]
  - Drug dose omission by device [Unknown]

NARRATIVE: CASE EVENT DATE: 20250415
